FAERS Safety Report 26040518 (Version 1)
Quarter: 2025Q4

REPORT INFORMATION
  Report Type: Spontaneous
  Country: US (occurrence: None)
  Receive Date: 20251112
  Receipt Date: 20251112
  Transmission Date: 20260117
  Serious: Yes (Hospitalization)
  Sender: FDA-CTU
  Company Number: None

PATIENT
  Age: 76 Year
  Sex: Female

DRUGS (9)
  1. CAPECITABINE [Suspect]
     Active Substance: CAPECITABINE
     Indication: Pancreatic carcinoma
     Dosage: FREQUENCY : TWICE A DAY;?
     Route: 048
     Dates: start: 20241003
  2. AMLODIPINE BESYLATE [Concomitant]
     Active Substance: AMLODIPINE BESYLATE
  3. ATENOLOL [Concomitant]
     Active Substance: ATENOLOL
  4. FARXIGA [Concomitant]
     Active Substance: DAPAGLIFLOZIN PROPANEDIOL
  5. LOPERAMIDE [Concomitant]
     Active Substance: LOPERAMIDE
  6. PANTOPRAZOLE [Concomitant]
     Active Substance: PANTOPRAZOLE
  7. PIOGLITAZONE [Concomitant]
     Active Substance: PIOGLITAZONE
  8. VALSARTAN [Concomitant]
     Active Substance: VALSARTAN
  9. CREON [Concomitant]
     Active Substance: PANCRELIPASE AMYLASE\PANCRELIPASE LIPASE\PANCRELIPASE PROTEASE

REACTIONS (1)
  - Fatigue [None]

NARRATIVE: CASE EVENT DATE: 20251108
